FAERS Safety Report 4334099-8 (Version None)
Quarter: 2004Q2

REPORT INFORMATION
  Report Type: 
  Country: None (occurrence: None)
  Receive Date: 20040402
  Receipt Date: 20040323
  Transmission Date: 20050107
  Serious: Yes (Hospitalization)
  Sender: FDA-Public Use
  Company Number: 20040300250

PATIENT
  Age: 13 Year
  Sex: Male

DRUGS (3)
  1. SUPRANE [Suspect]
     Indication: ANAESTHESIA
     Dates: start: 20040317, end: 20040317
  2. ACETAMINOPHEN [Concomitant]
  3. ENOXAPARIN SODIUM [Concomitant]

REACTIONS (5)
  - ALANINE AMINOTRANSFERASE INCREASED [None]
  - ASPARTATE AMINOTRANSFERASE INCREASED [None]
  - C-REACTIVE PROTEIN INCREASED [None]
  - GAMMA-GLUTAMYLTRANSFERASE INCREASED [None]
  - PYREXIA [None]
